FAERS Safety Report 14139597 (Version 2)
Quarter: 2017Q4

REPORT INFORMATION
  Report Type: Report from Study
  Country: HN (occurrence: HN)
  Receive Date: 20171029
  Receipt Date: 20171030
  Transmission Date: 20180321
  Serious: Yes (Life-Threatening, Hospitalization, Other)
  Sender: FDA-Public Use
  Company Number: PHHY2017HN158274

PATIENT
  Sex: Female
  Weight: 58.96 kg

DRUGS (3)
  1. SYNTHROID [Concomitant]
     Active Substance: LEVOTHYROXINE SODIUM
     Indication: PRODUCT USED FOR UNKNOWN INDICATION
     Route: 065
  2. EXELON PATCH [Suspect]
     Active Substance: RIVASTIGMINE
     Indication: DEMENTIA ALZHEIMER^S TYPE
     Dosage: 13.3 MG, QD PATCH 15 (CM2)
     Route: 062
  3. NEXIUM [Concomitant]
     Active Substance: ESOMEPRAZOLE MAGNESIUM
     Indication: PRODUCT USED FOR UNKNOWN INDICATION
     Route: 065

REACTIONS (13)
  - Condition aggravated [Unknown]
  - Feeling abnormal [Unknown]
  - Pneumonia [Unknown]
  - Mastication disorder [Unknown]
  - Productive cough [Unknown]
  - Back pain [Unknown]
  - Dysphagia [Unknown]
  - Eating disorder [Unknown]
  - Dementia Alzheimer^s type [Unknown]
  - Fluid retention [Unknown]
  - Respiratory arrest [Unknown]
  - Cardiac arrest [Unknown]
  - Malaise [Unknown]
